FAERS Safety Report 10166879 (Version 1)
Quarter: 2014Q2

REPORT INFORMATION
  Report Type: Spontaneous
  Country: GB (occurrence: None)
  Receive Date: 20140508
  Receipt Date: 20140508
  Transmission Date: 20141212
  Serious: Yes (Life-Threatening, Hospitalization)
  Sender: FDA-Public Use
  Company Number: AUR-APL-2014-05230

PATIENT
  Age: 4 Decade
  Sex: Female
  Weight: 82 kg

DRUGS (2)
  1. OLANZAPINE (OLANZAPINE) [Suspect]
     Indication: BIPOLAR DISORDER
  2. FLUOXETIN (FLUOXETINE HYDROCHLORIDE) [Concomitant]

REACTIONS (9)
  - Diverticulum [None]
  - Abdominal discomfort [None]
  - Pyrexia [None]
  - Dehydration [None]
  - Nausea [None]
  - Intestinal perforation [None]
  - Mental disorder [None]
  - Constipation [None]
  - Stress [None]
